FAERS Safety Report 23579961 (Version 1)
Quarter: 2024Q1

REPORT INFORMATION
  Report Type: Spontaneous
  Country: US (occurrence: US)
  Receive Date: 20240229
  Receipt Date: 20240229
  Transmission Date: 20240410
  Serious: No
  Sender: FDA-Public Use
  Company Number: US-BIOGEN-2023BI01239538

PATIENT
  Sex: Male

DRUGS (4)
  1. SKYCLARYS [Suspect]
     Active Substance: OMAVELOXOLONE
     Indication: Friedreich^s ataxia
     Route: 050
     Dates: start: 20230704
  2. SKYCLARYS [Suspect]
     Active Substance: OMAVELOXOLONE
     Dates: start: 20230714
  3. SKYCLARYS [Suspect]
     Active Substance: OMAVELOXOLONE
     Route: 050
     Dates: start: 20230704
  4. METOPROLOL [Concomitant]
     Active Substance: METOPROLOL
     Indication: Product used for unknown indication
     Route: 050

REACTIONS (6)
  - Pain [Unknown]
  - Blood creatinine increased [Unknown]
  - Pain in extremity [Unknown]
  - Myalgia [Unknown]
  - Fatigue [Unknown]
  - Product dose omission issue [Unknown]
